FAERS Safety Report 20692263 (Version 1)
Quarter: 2022Q2

REPORT INFORMATION
  Report Type: Spontaneous
  Country: AT (occurrence: AT)
  Receive Date: 20220409
  Receipt Date: 20220409
  Transmission Date: 20220721
  Serious: No
  Sender: FDA-Public Use
  Company Number: AT-ALKEM LABORATORIES LIMITED-AT-ALKEM-2021-06642

PATIENT
  Age: 52 Year
  Sex: Female

DRUGS (2)
  1. QUETIAPINE FUMARATE [Suspect]
     Active Substance: QUETIAPINE FUMARATE
     Indication: Bipolar disorder
     Dosage: 600 MILLIGRAM, Q.H.S
     Route: 065
  2. ATENOLOL [Concomitant]
     Active Substance: ATENOLOL
     Indication: Product used for unknown indication
     Dosage: UNK
     Route: 065

REACTIONS (1)
  - Restless legs syndrome [Recovered/Resolved]
